FAERS Safety Report 20815561 (Version 2)
Quarter: 2022Q2

REPORT INFORMATION
  Report Type: Spontaneous
  Country: FR (occurrence: FR)
  Receive Date: 20220511
  Receipt Date: 20220520
  Transmission Date: 20220720
  Serious: Yes (Hospitalization, Other)
  Sender: FDA-Public Use
  Company Number: None

PATIENT
  Age: 49 Year
  Sex: Female
  Weight: 85 kg

DRUGS (6)
  1. SOLU-MEDROL [Suspect]
     Active Substance: METHYLPREDNISOLONE SODIUM SUCCINATE
     Indication: Brain oedema
     Dosage: 120 MG, 3X/DAY
     Route: 042
     Dates: start: 20210713, end: 20210715
  2. MEDROL [Suspect]
     Active Substance: METHYLPREDNISOLONE
     Indication: Brain oedema
     Dosage: 6 DF, 1X/DAY
     Route: 048
     Dates: start: 20210722, end: 20210727
  3. MEDROL [Suspect]
     Active Substance: METHYLPREDNISOLONE
     Dosage: 1 DF, 1X/DAY
     Route: 048
     Dates: start: 20210921, end: 20210928
  4. METHYLPREDNISOLONE HEMISUCCINATE [Suspect]
     Active Substance: METHYLPREDNISOLONE HEMISUCCINATE
     Indication: Brain oedema
     Dosage: 120 MG, 2X/DAY
     Route: 042
     Dates: start: 20210716, end: 20210719
  5. METHYLPREDNISOLONE HEMISUCCINATE [Suspect]
     Active Substance: METHYLPREDNISOLONE HEMISUCCINATE
     Dosage: 120 MG, 1X/DAY
     Route: 042
     Dates: start: 20210720, end: 20210721
  6. METHYLPREDNISOLONE HEMISUCCINATE [Suspect]
     Active Substance: METHYLPREDNISOLONE HEMISUCCINATE
     Dosage: 360 MG, 1X/DAY
     Route: 042
     Dates: start: 20211027, end: 20211102

REACTIONS (3)
  - Hypokalaemia [Recovering/Resolving]
  - Colitis [Recovered/Resolved]
  - Peritonitis [Recovered/Resolved]

NARRATIVE: CASE EVENT DATE: 20211008
